FAERS Safety Report 9967265 (Version 2)
Quarter: 2014Q1

REPORT INFORMATION
  Report Type: Report from Study
  Country: US (occurrence: US)
  Receive Date: 20140305
  Receipt Date: 20140305
  Transmission Date: 20141002
  Serious: No
  Sender: FDA-Public Use
  Company Number: US-ABBVIE-13P-163-1107321-00

PATIENT
  Age: 27 Year
  Sex: Female
  Weight: 90.8 kg

DRUGS (21)
  1. HUMIRA [Suspect]
     Indication: CROHN^S DISEASE
     Dosage: DAY 1
     Route: 058
     Dates: start: 201306, end: 201306
  2. HUMIRA [Suspect]
     Dosage: DAY 15
  3. HUMIRA [Suspect]
  4. HUMIRA [Suspect]
     Indication: CROHN^S DISEASE
  5. VALIUM [Concomitant]
     Indication: MUSCLE SPASMS
  6. NEXIUM [Concomitant]
     Indication: GASTROOESOPHAGEAL REFLUX DISEASE
  7. PROMETHAZINE - CODEINE [Concomitant]
     Indication: ABDOMINAL PAIN UPPER
     Dosage: 1 TSP EVERY 6 HOURS AS NEEDED
  8. B 12 [Concomitant]
     Indication: PRODUCT USED FOR UNKNOWN INDICATION
  9. IRON [Concomitant]
     Indication: MINERAL SUPPLEMENTATION
     Dosage: 1-3 TABS DAILY
  10. PERCOCET [Concomitant]
     Indication: NECK PAIN
  11. PERCOCET [Concomitant]
     Indication: BACK PAIN
  12. LORTAB [Concomitant]
     Indication: NECK PAIN
  13. LORTAB [Concomitant]
     Indication: BACK PAIN
  14. PREDNISONE [Concomitant]
     Indication: CROHN^S DISEASE
  15. ZANAFLEX [Concomitant]
     Indication: NECK PAIN
  16. ZANAFLEX [Concomitant]
     Indication: BACK PAIN
  17. LOMOTIL [Concomitant]
     Indication: DIARRHOEA
     Dosage: 2 TABS EVERY 6 HOURS AS NEEDED
  18. PROMETHAZINE [Concomitant]
     Indication: NAUSEA
     Dosage: 1 TAB EVERY 6 HOURS AS NEEDED
  19. AMBIEN [Concomitant]
     Indication: INSOMNIA
     Dosage: AT BEDTIME
  20. VITAMIN D [Concomitant]
     Indication: VITAMIN D DECREASED
  21. MULTIVITAMIN [Concomitant]
     Indication: PRODUCT USED FOR UNKNOWN INDICATION
     Dosage: DAILY

REACTIONS (4)
  - Injury associated with device [Recovered/Resolved]
  - Wrong technique in drug usage process [Not Recovered/Not Resolved]
  - Incorrect route of drug administration [Not Recovered/Not Resolved]
  - Injection site pain [Not Recovered/Not Resolved]
